FAERS Safety Report 5232546-0 (Version None)
Quarter: 2007Q1

REPORT INFORMATION
  Report Type: 
  Country: None (occurrence: None)
  Receive Date: 20070207
  Receipt Date: 20070202
  Transmission Date: 20070707
  Serious: Yes (Other)
  Sender: FDA-Public Use
  Company Number: JP-JPN-A200700143

PATIENT
  Age: 19 Year
  Sex: Male
  Weight: 55 kg

DRUGS (6)
  1. PAXIL [Suspect]
     Indication: ANXIETY DISORDER
     Dosage: 20MG PER DAY
     Route: 048
     Dates: start: 20070104, end: 20070116
  2. DORMICUM [Suspect]
     Indication: ANXIETY DISORDER
     Dates: start: 20070115
  3. MYSLEE [Concomitant]
     Indication: INSOMNIA
     Dosage: 10MG PER DAY
     Route: 048
     Dates: start: 20070113
  4. SOLANAX [Concomitant]
     Indication: INSOMNIA
     Route: 048
     Dates: start: 20070103
  5. RIZE [Concomitant]
     Indication: INSOMNIA
     Route: 048
     Dates: start: 20070103
  6. RESTAS [Concomitant]
     Indication: ANXIETY DISORDER
     Dosage: 10MG PER DAY
     Route: 048
     Dates: start: 20070106

REACTIONS (2)
  - BLOOD CREATINE PHOSPHOKINASE INCREASED [None]
  - NEUROLEPTIC MALIGNANT SYNDROME [None]
